FAERS Safety Report 5250747-2 (Version None)
Quarter: 2007Q1

REPORT INFORMATION
  Report Type: 
  Country: None (occurrence: None)
  Receive Date: 20070228
  Receipt Date: 20060630
  Transmission Date: 20070707
  Serious: No
  Sender: FDA-Public Use
  Company Number: US-GLAXOSMITHKLINE-A0610913A

PATIENT
  Age: 35 Year
  Sex: Female

DRUGS (4)
  1. LAMICTAL [Suspect]
     Indication: BIPOLAR DISORDER
     Route: 048
  2. EFFEXOR [Concomitant]
  3. RISPERDAL [Concomitant]
  4. ORTHO TRI-CYCLEN [Concomitant]

REACTIONS (1)
  - CRYING [None]
